FAERS Safety Report 5005195-7 (Version None)
Quarter: 2006Q2

REPORT INFORMATION
  Report Type: 
  Country: None (occurrence: None)
  Receive Date: 20060518
  Receipt Date: 20060516
  Transmission Date: 20061013
  Serious: Yes (Life-Threatening)
  Sender: FDA-Public Use
  Company Number: 2006CG00877

PATIENT
  Age: 55 Year
  Sex: Female

DRUGS (4)
  1. MOPRAL [Suspect]
     Route: 048
     Dates: start: 20011001, end: 20051201
  2. ACETAMINOPHEN [Suspect]
     Indication: RHEUMATOID ARTHRITIS
     Route: 048
     Dates: end: 20060301
  3. VOLTARENE LP [Suspect]
     Indication: RHEUMATOID ARTHRITIS
     Route: 048
     Dates: start: 20021014, end: 20051201
  4. NOVATREX [Suspect]
     Indication: RHEUMATOID ARTHRITIS
     Route: 048
     Dates: start: 20020215, end: 20050801

REACTIONS (3)
  - BONE MARROW FAILURE [None]
  - IMMUNE SYSTEM DISORDER [None]
  - SELF-MEDICATION [None]
